FAERS Safety Report 7744822-8 (Version None)
Quarter: 2011Q3

REPORT INFORMATION
  Report Type: 
  Country: None (occurrence: None)
  Receive Date: 20110912
  Receipt Date: 20110908
  Transmission Date: 20111222
  Serious: No
  Sender: FDA-Public Use
  Company Number: US-TEVA-299805USA

PATIENT
  Sex: Female

DRUGS (4)
  1. COPAXONE [Suspect]
     Indication: MULTIPLE SCLEROSIS
     Dosage: 20 MILLIGRAM;
     Route: 058
     Dates: start: 20060101
  2. NUVIGIL [Concomitant]
  3. DULOXETINE HYDROCHLORIDE [Concomitant]
     Route: 048
  4. VITAMINS NOS [Concomitant]
     Route: 048

REACTIONS (2)
  - NEUROPATHY PERIPHERAL [None]
  - INJECTION SITE SCAR [None]
